FAERS Safety Report 7576457-4 (Version None)
Quarter: 2011Q2

REPORT INFORMATION
  Report Type: 
  Country: None (occurrence: None)
  Receive Date: 20110628
  Receipt Date: 20110608
  Transmission Date: 20111010
  Serious: Yes (Death, Other)
  Sender: FDA-Public Use
  Company Number: US-BAYER-200937387NA

PATIENT
  Age: 65 Year
  Sex: Female
  Weight: 72.562 kg

DRUGS (25)
  1. TRASYLOL [Suspect]
     Indication: MITRAL VALVE REPLACEMENT
  2. VANCOMYCIN [Concomitant]
     Dosage: 1 G, UNK
     Route: 042
     Dates: start: 20030911
  3. TRIDIL [Concomitant]
     Dosage: DRIP
     Route: 042
     Dates: start: 20030911
  4. ZETIA [Concomitant]
  5. LANOXIN [Concomitant]
     Dosage: 0.125 MG, QD
     Route: 048
  6. CELEBREX [Concomitant]
     Dosage: 200 Q/ DAILY
  7. NORVASC [Concomitant]
     Dosage: 5 MG, QD
     Route: 048
  8. ALLOPURINOL [Concomitant]
     Dosage: 300 MG, UNK
     Route: 048
  9. PROPRANOLOL [Concomitant]
     Dosage: 40 MG, BID
     Route: 048
  10. TRASYLOL [Suspect]
     Indication: CARDIAC OPERATION
     Route: 042
     Dates: start: 20030911
  11. TRASYLOL [Suspect]
     Indication: AORTIC VALVE REPLACEMENT
  12. SPIRONOLACTONE [Concomitant]
     Dosage: 25 MG, UNK
     Route: 048
  13. HEPARIN [Concomitant]
     Dosage: 250 MG, UNK
     Route: 042
     Dates: start: 20030911
  14. NEOSYNEPHRINE [Concomitant]
     Dosage: 0.1 MG, UNK
     Route: 042
     Dates: start: 20030911
  15. TRAZODONE HCL [Concomitant]
  16. LIDOCAINE [Concomitant]
     Dosage: 100 MG, UNK
     Route: 042
     Dates: start: 20030911
  17. AMIODARONE HCL [Concomitant]
  18. EPINEPHRINE [Concomitant]
     Dosage: DRIP
     Route: 042
     Dates: start: 20030911
  19. LISINOPRIL [Concomitant]
  20. VERSED [Concomitant]
     Dosage: UNK
     Route: 042
     Dates: start: 20030911
  21. KEITON [Concomitant]
  22. UNIVASC [Concomitant]
     Dosage: 15 MG, QD
     Route: 048
  23. DOPAMINE HCL [Concomitant]
     Dosage: DRIP
     Route: 042
     Dates: start: 20030911
  24. PROTAMINE SULFATE [Concomitant]
     Dosage: 250 MG, UNK
     Route: 042
     Dates: start: 20030911
  25. COREG [Concomitant]

REACTIONS (5)
  - PAIN [None]
  - INJURY [None]
  - DEATH [None]
  - RENAL FAILURE [None]
  - UNEVALUABLE EVENT [None]
